FAERS Safety Report 23384873 (Version 1)
Quarter: 2024Q1

REPORT INFORMATION
  Report Type: Report from Study
  Country: US (occurrence: US)
  Receive Date: 20240109
  Receipt Date: 20240109
  Transmission Date: 20240410
  Serious: Yes (Hospitalization, Other)
  Sender: FDA-Public Use
  Company Number: US-ABBVIE-5562677

PATIENT
  Sex: Male

DRUGS (1)
  1. HUMIRA [Suspect]
     Active Substance: ADALIMUMAB
     Indication: Psoriatic arthropathy
     Dosage: FORM STRENGTH-40 MG
     Route: 058
     Dates: start: 201704

REACTIONS (5)
  - Osteoarthritis [Unknown]
  - Osteoarthritis [Unknown]
  - Spinal disorder [Unknown]
  - Cartilage atrophy [Unknown]
  - Cartilage atrophy [Unknown]
